FAERS Safety Report 23671728 (Version 1)
Quarter: 2024Q1

REPORT INFORMATION
  Report Type: Spontaneous
  Country: SE (occurrence: SE)
  Receive Date: 20240326
  Receipt Date: 20240326
  Transmission Date: 20240409
  Serious: Yes (Hospitalization)
  Sender: FDA-Public Use
  Company Number: None

PATIENT
  Age: 60 Year
  Sex: Male

DRUGS (1)
  1. JARDIANCE [Suspect]
     Active Substance: EMPAGLIFLOZIN
     Indication: Type 2 diabetes mellitus
     Route: 048
     Dates: start: 20240208, end: 20240223

REACTIONS (6)
  - Weight decreased [Recovering/Resolving]
  - Blood phosphorus decreased [Recovering/Resolving]
  - Haemoglobin decreased [Recovering/Resolving]
  - Blood potassium decreased [Not Recovered/Not Resolved]
  - Diarrhoea [Recovering/Resolving]
  - Ketoacidosis [Recovered/Resolved]

NARRATIVE: CASE EVENT DATE: 20240101
